FAERS Safety Report 6285242-5 (Version None)
Quarter: 2009Q3

REPORT INFORMATION
  Report Type: 
  Country: None (occurrence: None)
  Receive Date: 20090727
  Receipt Date: 20090720
  Transmission Date: 20100115
  Serious: Yes (Other)
  Sender: FDA-Public Use
  Company Number: GB-TEVA-202870ISR

PATIENT
  Age: 27 Year
  Sex: Female

DRUGS (1)
  1. CABERGOLINE [Suspect]
     Indication: PITUITARY TUMOUR BENIGN
     Route: 048
     Dates: start: 20060901, end: 20080201

REACTIONS (4)
  - DRUG EXPOSURE DURING PREGNANCY [None]
  - GAIT DISTURBANCE [None]
  - HIP DYSPLASIA [None]
  - PREGNANCY [None]
